FAERS Safety Report 24263233 (Version 1)
Quarter: 2024Q3

REPORT INFORMATION
  Report Type: Spontaneous
  Country: US (occurrence: US)
  Receive Date: 20240829
  Receipt Date: 20240829
  Transmission Date: 20241016
  Serious: Yes (Other)
  Sender: BAYER
  Company Number: US-BAYER-2024A122617

PATIENT
  Age: 74 Year
  Sex: Female

DRUGS (4)
  1. CORICIDIN HBP CHEST CONGESTION AND COUGH [Suspect]
     Active Substance: DEXTROMETHORPHAN HYDROBROMIDE\GUAIFENESIN
     Indication: Cough
     Dosage: 1 DF, ONCE
     Route: 048
     Dates: start: 20240825, end: 20240825
  2. CORICIDIN HBP CHEST CONGESTION AND COUGH [Suspect]
     Active Substance: DEXTROMETHORPHAN HYDROBROMIDE\GUAIFENESIN
     Indication: COVID-19
  3. CORICIDIN HBP CHEST CONGESTION AND COUGH [Suspect]
     Active Substance: DEXTROMETHORPHAN HYDROBROMIDE\GUAIFENESIN
     Indication: Rhinorrhoea
  4. CORICIDIN HBP CHEST CONGESTION AND COUGH [Suspect]
     Active Substance: DEXTROMETHORPHAN HYDROBROMIDE\GUAIFENESIN
     Indication: Lacrimation increased

REACTIONS (2)
  - Choking [Unknown]
  - Foreign body in throat [Recovered/Resolved]

NARRATIVE: CASE EVENT DATE: 20240825
